FAERS Safety Report 22240876 (Version 1)
Quarter: 2023Q2

REPORT INFORMATION
  Report Type: Spontaneous
  Country: US (occurrence: US)
  Receive Date: 20230421
  Receipt Date: 20230421
  Transmission Date: 20230722
  Serious: No
  Sender: FDA-Public Use
  Company Number: US-MYLANLABS-2023M1033743

PATIENT
  Sex: Female

DRUGS (1)
  1. ESTRADIOL TRANSDERMAL SYSTEM [Suspect]
     Active Substance: ESTRADIOL
     Indication: Product used for unknown indication
     Dosage: 0.025 MILLIGRAM, QD (ONCE-WEEKLY)
     Route: 062

REACTIONS (5)
  - Brain fog [Unknown]
  - Insomnia [Unknown]
  - Hot flush [Unknown]
  - Product packaging quantity issue [Unknown]
  - Product substitution issue [Unknown]
